FAERS Safety Report 18546590 (Version 1)
Quarter: 2020Q4

REPORT INFORMATION
  Report Type: Spontaneous
  Country: DE (occurrence: DE)
  Receive Date: 20201125
  Receipt Date: 20201125
  Transmission Date: 20210114
  Serious: Yes (Hospitalization)
  Sender: FDA-Public Use
  Company Number: DE-TEVA-2020-DE-1851636

PATIENT
  Age: 77 Year
  Sex: Female
  Weight: 105 kg

DRUGS (13)
  1. BUDESONID [Concomitant]
     Active Substance: BUDESONIDE
     Dosage: 400 MICROGRAM DAILY;  1-0-1-0
  2. PANTOPRAZOL [Concomitant]
     Active Substance: PANTOPRAZOLE SODIUM
     Dosage: 20 MILLIGRAM DAILY; 1-0-0-0
  3. METAMIZOL [Concomitant]
     Active Substance: METAMIZOLE SODIUM
     Dosage: 1500 MILLIGRAM DAILY; 1-1-1-0
  4. QUETIAPIN [Suspect]
     Active Substance: QUETIAPINE
     Dosage: 100 MILLIGRAM DAILY; 0-0-1-0
  5. LORAZEPAM. [Suspect]
     Active Substance: LORAZEPAM
     Dosage: 2 MILLIGRAM DAILY;  1-1-1-1
  6. BISOPROLOL [Concomitant]
     Active Substance: BISOPROLOL
     Dosage: 100 MILLIGRAM DAILY; 1-0-1-0
  7. INSULIN LISPRO [Concomitant]
     Active Substance: INSULIN LISPRO
     Dosage: ACCORDING TO SCHEME
  8. INSULIN DETEMIR [Concomitant]
     Active Substance: INSULIN DETEMIR
     Dosage: 20 IU (INTERNATIONAL UNIT) DAILY;  0-0-1-0
  9. TILIDINE/NALOXONE [Concomitant]
     Active Substance: NALOXONE HYDROCHLORIDE\TILIDINE HYDROCHLORIDE
     Dosage: 8|100 MG, 1-0-0.5-0
  10. PIPAMPERON [Suspect]
     Active Substance: PIPAMPERONE HYDROCHLORIDE
     Dosage: 20 MG, 1-1-2-0
  11. PREGABALIN. [Suspect]
     Active Substance: PREGABALIN
     Dosage: 150 MILLIGRAM DAILY; 1-1-1-0
  12. LERCANIDIPIN [Concomitant]
     Active Substance: LERCANIDIPINE
     Dosage: 40 MILLIGRAM DAILY; 1-0-1-0
  13. HYDROCHLOROTHIAZID [Concomitant]
     Active Substance: HYDROCHLOROTHIAZIDE
     Dosage: 25 MILLIGRAM DAILY; 0-0-1-0

REACTIONS (4)
  - Tachycardia [Unknown]
  - Tachypnoea [Unknown]
  - Dyspnoea [Unknown]
  - Arrhythmia [Unknown]
